FAERS Safety Report 4401468-7 (Version None)
Quarter: 2004Q3

REPORT INFORMATION
  Report Type: 
  Country: None (occurrence: None)
  Receive Date: 20040907
  Receipt Date: 20040518
  Transmission Date: 20050211
  Serious: No
  Sender: FDA-Public Use
  Company Number: US-BRISTOL-MYERS SQUIBB COMPANY-12590154

PATIENT
  Age: 74 Year
  Sex: Female
  Weight: 58 kg

DRUGS (9)
  1. COUMADIN [Suspect]
     Indication: THROMBOSIS PROPHYLAXIS
     Dosage: 5MG 3X/WK, 4MG 4X/WK
     Route: 048
  2. COUMADIN [Suspect]
     Indication: ATRIAL FIBRILLATION
     Dosage: 5MG 3X/WK, 4MG 4X/WK
     Route: 048
  3. PRILOSEC [Concomitant]
  4. DIGOXIN [Concomitant]
  5. CARDIZEM [Concomitant]
  6. LASIX [Concomitant]
  7. POTASSIUM [Concomitant]
  8. LIPITOR [Concomitant]
  9. METAMUCIL-2 [Concomitant]

REACTIONS (1)
  - INTERNATIONAL NORMALISED RATIO DECREASED [None]
